FAERS Safety Report 17137581 (Version 2)
Quarter: 2025Q3

REPORT INFORMATION
  Report Type: Spontaneous
  Country: EU (occurrence: EU)
  Receive Date: 20191210
  Receipt Date: 20250710
  Transmission Date: 20251021
  Serious: Yes (Death, Other)
  Sender: AUROBINDO
  Company Number: EU-TEVA-578751ISR

PATIENT
  Age: 21 Year
  Sex: Female

DRUGS (7)
  1. FLUCONAZOLE [Suspect]
     Active Substance: FLUCONAZOLE
     Indication: Product used for unknown indication
     Route: 065
  2. IDARUBICIN [Suspect]
     Active Substance: IDARUBICIN
     Indication: Product used for unknown indication
     Route: 065
  3. VORICONAZOLE [Concomitant]
     Active Substance: VORICONAZOLE
     Indication: Product used for unknown indication
     Route: 065
  4. IMIPENEM [Concomitant]
     Active Substance: IMIPENEM
     Indication: Product used for unknown indication
     Route: 065
  5. CYTARABINE [Concomitant]
     Active Substance: CYTARABINE
     Indication: Product used for unknown indication
     Route: 065
  6. TEICOPLANIN [Concomitant]
     Active Substance: TEICOPLANIN
     Indication: Product used for unknown indication
     Route: 065
  7. CILASTATIN [Concomitant]
     Active Substance: CILASTATIN
     Indication: Product used for unknown indication
     Route: 065

REACTIONS (6)
  - Pancytopenia [Fatal]
  - Septic shock [Unknown]
  - Pneumonia pseudomonal [Unknown]
  - Pneumonia [Unknown]
  - Caesarean section [Unknown]
  - Maternal exposure during pregnancy [Unknown]
